FAERS Safety Report 6689187-8 (Version None)
Quarter: 2010Q2

REPORT INFORMATION
  Report Type: 
  Country: None (occurrence: None)
  Receive Date: 20100420
  Receipt Date: 20100204
  Transmission Date: 20101027
  Serious: No
  Sender: FDA-Public Use
  Company Number: US-ALLERGAN-0915322US

PATIENT
  Age: 55 Year
  Sex: Female

DRUGS (4)
  1. LATISSE [Suspect]
     Dosage: 1 GTT, QHS
     Route: 061
     Dates: start: 20091001
  2. LATISSE [Suspect]
     Dosage: 1 UNK, QHS
     Route: 061
     Dates: start: 20090506
  3. PRESERVATIVE FREE EYE DROPS [Concomitant]
     Indication: EYE DISORDER
     Dosage: UNK
     Dates: end: 20091201
  4. REFRESH (UNK) [Concomitant]
     Indication: EYE DISORDER
     Dosage: UNK
     Dates: start: 20091201

REACTIONS (4)
  - DRUG INEFFECTIVE [None]
  - HAIR GROWTH ABNORMAL [None]
  - INCORRECT DOSE ADMINISTERED [None]
  - MADAROSIS [None]
